FAERS Safety Report 10717228 (Version 1)
Quarter: 2015Q1

REPORT INFORMATION
  Report Type: Spontaneous
  Country: US (occurrence: US)
  Receive Date: 20150116
  Receipt Date: 20150116
  Transmission Date: 20150721
  Serious: No
  Sender: FDA-Public Use
  Company Number: US-ENDO PHARMACEUTICALS INC.-HCDA20140062

PATIENT
  Age: 54 Year
  Sex: Female

DRUGS (1)
  1. HYDROCODONE BITARTRATE AND ACETAMINOPHEN [Suspect]
     Active Substance: ACETAMINOPHEN\HYDROCODONE BITARTRATE
     Indication: PAIN
     Dosage: 7.5/325MG
     Route: 048
     Dates: start: 20140327, end: 20140413

REACTIONS (3)
  - Tremor [Unknown]
  - Asthenia [Unknown]
  - Dizziness [Unknown]

NARRATIVE: CASE EVENT DATE: 20140327
